FAERS Safety Report 11044353 (Version 9)
Quarter: 2015Q4

REPORT INFORMATION
  Report Type: Report from Study
  Country: HU (occurrence: HU)
  Receive Date: 20150417
  Receipt Date: 20151217
  Transmission Date: 20160304
  Serious: Yes (Death, Hospitalization, Disabling, Other)
  Sender: FDA-Public Use
  Company Number: HU-GILEAD-2015-0146879

PATIENT
  Age: 48 Year
  Sex: Female
  Weight: 59 kg

DRUGS (10)
  1. FOLSAV [Concomitant]
     Indication: ANAEMIA
     Dosage: UNK
     Dates: start: 201208
  2. SUMETROLIM [Concomitant]
     Indication: CYTOMEGALOVIRUS CHORIORETINITIS
     Dosage: UNK
     Dates: start: 201208
  3. RED BLOOD CELLS, CONCENTRATED [Concomitant]
     Active Substance: HUMAN RED BLOOD CELL
     Dosage: UNK
     Dates: start: 20150411
  4. FURON                              /00032601/ [Concomitant]
     Active Substance: FUROSEMIDE
  5. IDELALISIB [Suspect]
     Active Substance: IDELALISIB
     Indication: B-CELL LYMPHOMA
     Dosage: 150 MG, BID
     Route: 048
     Dates: start: 20141124, end: 20150327
  6. PANTOPRAZOLE [Concomitant]
     Active Substance: PANTOPRAZOLE SODIUM
     Indication: PAIN PROPHYLAXIS
     Dosage: UNK
     Dates: start: 201208
  7. RITUXIMAB [Suspect]
     Active Substance: RITUXIMAB
     Indication: B-CELL LYMPHOMA
     Dosage: 546 MG, CYCLICAL
     Route: 042
     Dates: start: 20141125
  8. HERPESIN                           /00587301/ [Concomitant]
  9. MEDROL                             /00049603/ [Concomitant]
     Indication: ANAEMIA
     Dosage: UNK
     Dates: start: 201409
  10. VEROSPIRON [Concomitant]
     Active Substance: SPIRONOLACTONE

REACTIONS (4)
  - Poor venous access [None]
  - Jaundice [Fatal]
  - Hepatic failure [Fatal]
  - Abdominal pain [Fatal]

NARRATIVE: CASE EVENT DATE: 20150326
